FAERS Safety Report 12003236 (Version 1)
Quarter: 2016Q1

REPORT INFORMATION
  Report Type: Report from Study
  Country: US (occurrence: US)
  Receive Date: 20160204
  Receipt Date: 20160204
  Transmission Date: 20160526
  Serious: No
  Sender: FDA-Public Use
  Company Number: US-ABBVIE-15K-163-1433318-00

PATIENT
  Sex: Female

DRUGS (1)
  1. HUMIRA [Suspect]
     Active Substance: ADALIMUMAB
     Indication: PSORIATIC ARTHROPATHY
     Route: 065
     Dates: start: 20150501

REACTIONS (5)
  - Anti-thyroid antibody positive [Unknown]
  - Dyspepsia [Unknown]
  - Eye pain [Unknown]
  - Thyroxine decreased [Unknown]
  - Nausea [Unknown]

NARRATIVE: CASE EVENT DATE: 2015
